FAERS Safety Report 20344157 (Version 10)
Quarter: 2022Q4

REPORT INFORMATION
  Report Type: Report from Study
  Country: JP (occurrence: JP)
  Receive Date: 20220118
  Receipt Date: 20221026
  Transmission Date: 20230113
  Serious: Yes (Death, Hospitalization, Other)
  Sender: FDA-Public Use
  Company Number: JP-BRISTOL-MYERS SQUIBB COMPANY-BMS-2022-005164

PATIENT
  Age: 64 Year
  Sex: Male
  Weight: 65.3 kg

DRUGS (61)
  1. YERVOY [Suspect]
     Active Substance: IPILIMUMAB
     Indication: Non-small cell lung cancer recurrent
     Dosage: UNK
     Route: 041
     Dates: start: 20210408, end: 20210701
  2. YERVOY [Suspect]
     Active Substance: IPILIMUMAB
     Route: 041
     Dates: start: 20210520, end: 20210520
  3. YERVOY [Suspect]
     Active Substance: IPILIMUMAB
     Route: 041
     Dates: start: 20210701, end: 20210701
  4. YERVOY [Suspect]
     Active Substance: IPILIMUMAB
     Route: 041
     Dates: start: 20210408, end: 20210701
  5. NIVOLUMAB [Suspect]
     Active Substance: NIVOLUMAB
     Indication: Non-small cell lung cancer recurrent
     Route: 041
     Dates: start: 20210408, end: 20210408
  6. NIVOLUMAB [Suspect]
     Active Substance: NIVOLUMAB
     Route: 041
     Dates: start: 20210506, end: 20210506
  7. NIVOLUMAB [Suspect]
     Active Substance: NIVOLUMAB
     Route: 041
     Dates: start: 20210520, end: 20210520
  8. NIVOLUMAB [Suspect]
     Active Substance: NIVOLUMAB
     Route: 041
     Dates: start: 20210701, end: 20210701
  9. NIVOLUMAB [Suspect]
     Active Substance: NIVOLUMAB
     Route: 041
     Dates: start: 20210610, end: 20210610
  10. BARACLUDE [Concomitant]
     Active Substance: ENTECAVIR
     Indication: Product used for unknown indication
     Route: 048
  11. BARACLUDE [Concomitant]
     Active Substance: ENTECAVIR
     Route: 048
  12. BARACLUDE [Concomitant]
     Active Substance: ENTECAVIR
     Route: 048
  13. BARACLUDE [Concomitant]
     Active Substance: ENTECAVIR
     Route: 048
  14. BARACLUDE [Concomitant]
     Active Substance: ENTECAVIR
     Dosage: UNK
     Route: 048
  15. BARACLUDE [Concomitant]
     Active Substance: ENTECAVIR
     Dosage: UNK
     Route: 048
  16. ASPIRIN [Concomitant]
     Active Substance: ASPIRIN
     Indication: Product used for unknown indication
     Route: 048
  17. ASPIRIN [Concomitant]
     Active Substance: ASPIRIN
     Dosage: UNK
     Route: 048
  18. ASPIRIN [Concomitant]
     Active Substance: ASPIRIN
     Route: 048
  19. ASPIRIN [Concomitant]
     Active Substance: ASPIRIN
     Dosage: UNK
     Route: 048
  20. ASPIRIN [Concomitant]
     Active Substance: ASPIRIN
  21. ASPIRIN [Concomitant]
     Active Substance: ASPIRIN
     Dosage: UNK
     Route: 048
  22. ASPIRIN [Concomitant]
     Active Substance: ASPIRIN
     Dosage: UNK
     Route: 048
  23. VILDAGLIPTIN [Concomitant]
     Active Substance: VILDAGLIPTIN
     Indication: Product used for unknown indication
     Route: 048
  24. VILDAGLIPTIN [Concomitant]
     Active Substance: VILDAGLIPTIN
     Dosage: UNK
     Route: 048
  25. VILDAGLIPTIN [Concomitant]
     Active Substance: VILDAGLIPTIN
     Route: 048
  26. VILDAGLIPTIN [Concomitant]
     Active Substance: VILDAGLIPTIN
     Dosage: UNK
     Route: 048
  27. VILDAGLIPTIN [Concomitant]
     Active Substance: VILDAGLIPTIN
  28. VILDAGLIPTIN [Concomitant]
     Active Substance: VILDAGLIPTIN
     Dosage: UNK
     Route: 048
  29. VILDAGLIPTIN [Concomitant]
     Active Substance: VILDAGLIPTIN
     Dosage: UNK
     Route: 048
  30. TRESIBA [Concomitant]
     Active Substance: INSULIN DEGLUDEC
     Indication: Product used for unknown indication
     Route: 065
  31. TRESIBA [Concomitant]
     Active Substance: INSULIN DEGLUDEC
     Dosage: UNK
     Route: 065
  32. TRESIBA [Concomitant]
     Active Substance: INSULIN DEGLUDEC
     Route: 065
  33. TRESIBA [Concomitant]
     Active Substance: INSULIN DEGLUDEC
     Dosage: UNK
     Route: 065
  34. TRESIBA [Concomitant]
     Active Substance: INSULIN DEGLUDEC
  35. TRESIBA [Concomitant]
     Active Substance: INSULIN DEGLUDEC
     Dosage: UNK
     Route: 065
  36. TRESIBA [Concomitant]
     Active Substance: INSULIN DEGLUDEC
     Dosage: UNK
     Route: 065
  37. RYZODEG 70/30 [Concomitant]
     Active Substance: INSULIN ASPART\INSULIN DEGLUDEC
     Indication: Product used for unknown indication
     Route: 065
  38. RYZODEG 70/30 [Concomitant]
     Active Substance: INSULIN ASPART\INSULIN DEGLUDEC
     Dosage: UNK
     Route: 065
  39. RYZODEG 70/30 [Concomitant]
     Active Substance: INSULIN ASPART\INSULIN DEGLUDEC
     Route: 065
  40. RYZODEG 70/30 [Concomitant]
     Active Substance: INSULIN ASPART\INSULIN DEGLUDEC
     Dosage: UNK
     Route: 065
  41. RYZODEG 70/30 [Concomitant]
     Active Substance: INSULIN ASPART\INSULIN DEGLUDEC
  42. RYZODEG 70/30 [Concomitant]
     Active Substance: INSULIN ASPART\INSULIN DEGLUDEC
     Dosage: UNK
     Route: 065
  43. RYZODEG 70/30 [Concomitant]
     Active Substance: INSULIN ASPART\INSULIN DEGLUDEC
     Dosage: UNK
     Route: 065
  44. TELMISARTAN [Concomitant]
     Active Substance: TELMISARTAN
     Indication: Product used for unknown indication
     Route: 048
  45. TELMISARTAN [Concomitant]
     Active Substance: TELMISARTAN
     Dosage: UNK
     Route: 048
  46. TELMISARTAN [Concomitant]
     Active Substance: TELMISARTAN
     Route: 048
  47. TELMISARTAN [Concomitant]
     Active Substance: TELMISARTAN
     Dosage: UNK
     Route: 048
  48. TELMISARTAN [Concomitant]
     Active Substance: TELMISARTAN
  49. TELMISARTAN [Concomitant]
     Active Substance: TELMISARTAN
     Dosage: UNK
     Route: 048
  50. TELMISARTAN [Concomitant]
     Active Substance: TELMISARTAN
     Dosage: UNK
     Route: 048
  51. BISOPROLOL FUMARATE [Concomitant]
     Active Substance: BISOPROLOL FUMARATE
     Indication: Product used for unknown indication
     Route: 048
  52. BISOPROLOL FUMARATE [Concomitant]
     Active Substance: BISOPROLOL FUMARATE
     Dosage: UNK
     Route: 048
  53. BISOPROLOL FUMARATE [Concomitant]
     Active Substance: BISOPROLOL FUMARATE
     Route: 048
  54. BISOPROLOL FUMARATE [Concomitant]
     Active Substance: BISOPROLOL FUMARATE
     Dosage: UNK
     Route: 048
  55. BISOPROLOL FUMARATE [Concomitant]
     Active Substance: BISOPROLOL FUMARATE
  56. BISOPROLOL FUMARATE [Concomitant]
     Active Substance: BISOPROLOL FUMARATE
     Dosage: UNK
     Route: 048
  57. BISOPROLOL FUMARATE [Concomitant]
     Active Substance: BISOPROLOL FUMARATE
     Dosage: UNK
     Route: 048
  58. AMLODIPINE BESYLATE [Concomitant]
     Active Substance: AMLODIPINE BESYLATE
     Indication: Product used for unknown indication
     Route: 048
  59. AMLODIPINE BESYLATE [Concomitant]
     Active Substance: AMLODIPINE BESYLATE
     Route: 048
  60. LEVOTHYROXINE SODIUM [Concomitant]
     Active Substance: LEVOTHYROXINE SODIUM
     Indication: Product used for unknown indication
     Route: 048
  61. LEVOTHYROXINE SODIUM [Concomitant]
     Active Substance: LEVOTHYROXINE SODIUM
     Route: 048

REACTIONS (8)
  - Enteritis infectious [Fatal]
  - Sepsis [Fatal]
  - Bradycardia [Unknown]
  - Respiratory arrest [Unknown]
  - Pneumonia [Recovered/Resolved]
  - Adrenal insufficiency [Unknown]
  - Depressed level of consciousness [Unknown]
  - Pyrexia [Unknown]

NARRATIVE: CASE EVENT DATE: 20210531
